FAERS Safety Report 8423389-5 (Version None)
Quarter: 2012Q2

REPORT INFORMATION
  Report Type: 
  Country: None (occurrence: None)
  Receive Date: 20120323
  Receipt Date: 20110314
  Transmission Date: 20120825
  Serious: Yes (Other)
  Sender: FDA-Public Use
  Company Number: 163-21880-11022350

PATIENT
  Age: 73 Year
  Sex: Male
  Weight: 88.905 kg

DRUGS (7)
  1. ASPIRIN [Concomitant]
  2. TRAMADOL HCL [Concomitant]
  3. SIMVASTATIN [Concomitant]
  4. GABAPENTIN [Concomitant]
  5. REVLIMID [Suspect]
     Indication: MYELODYSPLASTIC SYNDROME
     Dosage: 10 MG, 1 IN 1 D, PO
     Route: 048
     Dates: start: 20110202, end: 20110217
  6. COLACE (DOCUSATE SODIUM) [Concomitant]
  7. PRILOSEC [Concomitant]

REACTIONS (2)
  - RASH PAPULAR [None]
  - PRURITUS [None]
